FAERS Safety Report 5008248-2 (Version None)
Quarter: 2006Q2

REPORT INFORMATION
  Report Type: 
  Country: None (occurrence: None)
  Receive Date: 20060523
  Receipt Date: 20050527
  Transmission Date: 20061013
  Serious: Yes (Hospitalization)
  Sender: FDA-Public Use
  Company Number: PHHO2005JP08440

PATIENT
  Age: 71 Year
  Sex: Male

DRUGS (24)
  1. EXJADE [Suspect]
     Indication: HAEMOSIDEROSIS
     Dosage: 250 MG DAILY
     Route: 048
     Dates: start: 20050524, end: 20050528
  2. BONZOL [Concomitant]
     Dosage: 200 MG, UNK
     Route: 048
  3. GASTER [Concomitant]
     Dosage: 20 MG, UNK
     Route: 048
  4. PURSENNID [Concomitant]
     Dosage: 12 MG, UNK
     Route: 048
     Dates: end: 20050602
  5. LASIX [Concomitant]
     Dosage: 20 MG, UNK
     Route: 048
     Dates: start: 20050401, end: 20050607
  6. HALCION [Concomitant]
     Dosage: 0.25 MG, UNK
     Route: 048
     Dates: start: 20050401
  7. PYDOXAL [Concomitant]
     Dosage: 120 MG, UNK
     Route: 048
     Dates: start: 20050425, end: 20050601
  8. GASMOTIN [Concomitant]
     Dosage: 30 MG, UNK
     Route: 048
     Dates: end: 20050602
  9. LAXOBERON [Concomitant]
     Route: 048
     Dates: end: 20050527
  10. KETOPROFEN [Concomitant]
     Dates: end: 20050605
  11. PEON [Concomitant]
     Dosage: 100 MG, UNK
     Route: 048
     Dates: start: 20050524, end: 20050606
  12. FOIPAN [Concomitant]
     Dosage: 300 MG, UNK
     Route: 048
     Dates: start: 20050603
  13. ALLOPURINOL [Concomitant]
     Dosage: 200 MG, UNK
     Route: 048
     Dates: start: 20050604
  14. DEPAS [Concomitant]
     Route: 048
     Dates: start: 20050502
  15. BAKTAR [Concomitant]
     Route: 048
     Dates: start: 20050722
  16. PREDNISOLONE [Concomitant]
     Dosage: 15 MG, UNK
     Route: 048
  17. CATLEP [Concomitant]
     Route: 048
     Dates: start: 20050902
  18. TRANSFUSIONS [Concomitant]
  19. BONALON [Concomitant]
     Indication: MYELODYSPLASTIC SYNDROME
  20. UNIPHYL [Concomitant]
     Indication: EMPHYSEMA
  21. SEREVENT [Concomitant]
     Indication: EMPHYSEMA
  22. MUCOSTA [Concomitant]
     Indication: PROPHYLAXIS
  23. EURODIN [Concomitant]
     Indication: INSOMNIA
  24. PRIMOBOLAN-DEPOT INJ [Concomitant]
     Indication: MYELODYSPLASTIC SYNDROME

REACTIONS (8)
  - ABDOMINAL PAIN [None]
  - ANOREXIA [None]
  - BLOOD AMYLASE INCREASED [None]
  - DIZZINESS EXERTIONAL [None]
  - DYSPNOEA [None]
  - MALAISE [None]
  - PANCREATITIS ACUTE [None]
  - PYREXIA [None]
